FAERS Safety Report 16609015 (Version 17)
Quarter: 2024Q4

REPORT INFORMATION
  Report Type: Spontaneous
  Country: IN (occurrence: IN)
  Receive Date: 20190722
  Receipt Date: 20241014
  Transmission Date: 20250114
  Serious: Yes (Hospitalization)
  Sender: PFIZER
  Company Number: IN-PFIZER INC-2017420485

PATIENT
  Age: 45 Year
  Sex: Female

DRUGS (6)
  1. PALBOCICLIB [Suspect]
     Active Substance: PALBOCICLIB
     Indication: Breast cancer metastatic
     Dosage: ONCE DAILY X21 DAYS/7 DAYS OFF
     Route: 048
     Dates: start: 20170923, end: 2017
  2. PALBOCICLIB [Suspect]
     Active Substance: PALBOCICLIB
     Dosage: 100 MG
     Route: 048
     Dates: start: 2017
  3. PALBOCICLIB [Suspect]
     Active Substance: PALBOCICLIB
     Dosage: 125 MG, 1X/DAY
     Route: 048
  4. FEMARA [Concomitant]
     Active Substance: LETROZOLE
     Indication: Breast cancer metastatic
     Dosage: 2.5 MG, 1X/DAY
  5. ROCKBON [Concomitant]
     Dosage: 1 DF, 2X/DAY
  6. TRAMADOL HYDROCHLORIDE [Concomitant]
     Active Substance: TRAMADOL HYDROCHLORIDE
     Dosage: 50 MG, 3X/DAY (1 TAB 3X A DAY X 2 DAYS/SOS)

REACTIONS (13)
  - Back pain [Recovered/Resolved]
  - Cough [Recovering/Resolving]
  - Nausea [Unknown]
  - Vomiting [Unknown]
  - Full blood count abnormal [Unknown]
  - Pain [Not Recovered/Not Resolved]
  - Pain in extremity [Unknown]
  - Arthralgia [Unknown]
  - Mouth ulceration [Unknown]
  - Arthralgia [Unknown]
  - White blood cell count decreased [Unknown]
  - General physical condition abnormal [Unknown]
  - Neoplasm progression [Unknown]

NARRATIVE: CASE EVENT DATE: 20170101
